FAERS Safety Report 11180178 (Version 11)
Quarter: 2016Q4

REPORT INFORMATION
  Report Type: Report from Study
  Country: US (occurrence: US)
  Receive Date: 20150611
  Receipt Date: 20161012
  Transmission Date: 20170206
  Serious: Yes (Hospitalization, Other)
  Sender: FDA-Public Use
  Company Number: US-SA-2015SA019540

PATIENT
  Age: 63 Year
  Sex: Female

DRUGS (6)
  1. LEMTRADA [Suspect]
     Active Substance: ALEMTUZUMAB
     Indication: MULTIPLE SCLEROSIS
     Route: 041
     Dates: start: 20150126, end: 20150130
  2. LEMTRADA [Suspect]
     Active Substance: ALEMTUZUMAB
     Indication: MULTIPLE SCLEROSIS
     Route: 041
     Dates: start: 20160426, end: 20160428
  3. MACROBID [Suspect]
     Active Substance: NITROFURANTOIN\NITROFURANTOIN MONOHYDRATE
     Indication: CYSTITIS
     Route: 065
  4. LORAZEPAM. [Concomitant]
     Active Substance: LORAZEPAM
     Indication: INSOMNIA
     Dates: start: 2015
  5. Z PACK [Suspect]
     Active Substance: AZITHROMYCIN DIHYDRATE
     Indication: PULMONARY CONGESTION
     Route: 065
     Dates: end: 20150408
  6. CORTISONE [Suspect]
     Active Substance: CORTISONE\HYDROCORTISONE
     Route: 065

REACTIONS (33)
  - Cough [Unknown]
  - Dry skin [Recovering/Resolving]
  - Laboratory test abnormal [Not Recovered/Not Resolved]
  - Rash generalised [Unknown]
  - Joint range of motion decreased [Unknown]
  - Skin disorder [Recovering/Resolving]
  - Increased upper airway secretion [Unknown]
  - Peroneal nerve palsy [Unknown]
  - Temperature intolerance [Not Recovered/Not Resolved]
  - Pruritus [Recovering/Resolving]
  - Activities of daily living impaired [Unknown]
  - Thyroid disorder [Unknown]
  - Cystitis [Unknown]
  - Flushing [Recovered/Resolved]
  - Rash [Recovered/Resolved]
  - Neutrophil count decreased [Unknown]
  - Pruritus [Unknown]
  - Sensory disturbance [Recovering/Resolving]
  - Pain of skin [Unknown]
  - Oropharyngeal pain [Unknown]
  - Fatigue [Not Recovered/Not Resolved]
  - Alopecia [Recovering/Resolving]
  - Pulmonary congestion [Unknown]
  - Thyroid function test abnormal [Unknown]
  - Skin burning sensation [Recovering/Resolving]
  - Appendicitis perforated [Recovered/Resolved]
  - Platelet count decreased [Unknown]
  - Skin exfoliation [Unknown]
  - Urticaria [Unknown]
  - Constipation [Unknown]
  - Toothache [Unknown]
  - White blood cell count decreased [Not Recovered/Not Resolved]
  - Drug hypersensitivity [Unknown]

NARRATIVE: CASE EVENT DATE: 2015
